FAERS Safety Report 9834306 (Version 1)
Quarter: 2014Q1

REPORT INFORMATION
  Report Type: Spontaneous
  Country: PL (occurrence: PL)
  Receive Date: 20140122
  Receipt Date: 20140122
  Transmission Date: 20141002
  Serious: Yes (Hospitalization)
  Sender: FDA-Public Use
  Company Number: PL-JNJFOC-20140108642

PATIENT
  Age: 21 Year
  Sex: Male

DRUGS (1)
  1. TOPAMAX [Suspect]
     Indication: EPILEPSY
     Route: 048
     Dates: start: 200911, end: 201005

REACTIONS (3)
  - Amnesia [Recovered/Resolved]
  - Hallucination, auditory [Recovered/Resolved]
  - Hallucination, olfactory [Recovered/Resolved]
